FAERS Safety Report 6012634-1 (Version None)
Quarter: 2008Q4

REPORT INFORMATION
  Report Type: 
  Country: None (occurrence: None)
  Receive Date: 20081217
  Receipt Date: 20081203
  Transmission Date: 20090506
  Serious: Yes (Other)
  Sender: FDA-Public Use
  Company Number: 2008S1019579

PATIENT
  Age: 53 Year
  Sex: Male

DRUGS (4)
  1. NAPROXEN [Suspect]
     Indication: DRUG USE FOR UNKNOWN INDICATION
     Dosage: 500 MG;TWICE A DAY; UNKNOWN
  2. SERTRALINE [Suspect]
     Indication: DEPRESSION
     Dosage: 100 MG;DAILY;UNKNOWN
  3. PARACETAMOL [Concomitant]
  4. CODEINEFOSFAAT [Concomitant]

REACTIONS (2)
  - HAEMATOMA [None]
  - SQUAMOUS CELL CARCINOMA [None]
